FAERS Safety Report 13775699 (Version 1)
Quarter: 2017Q3

REPORT INFORMATION
  Report Type: Spontaneous
  Country: US (occurrence: US)
  Receive Date: 20170720
  Receipt Date: 20170720
  Transmission Date: 20171127
  Serious: No
  Sender: FDA-Public Use
  Company Number: US-BAUSCH-BL-2017-009790

PATIENT
  Age: 54 Year
  Sex: Female
  Weight: 74.91 kg

DRUGS (3)
  1. BESIVANCE [Suspect]
     Active Substance: BESIFLOXACIN
     Indication: PREOPERATIVE CARE
     Dosage: IN HER LEFT EYE
     Route: 047
     Dates: start: 201703
  2. BESIVANCE [Suspect]
     Active Substance: BESIFLOXACIN
     Dosage: IN HER RIGHT EYE
     Route: 047
     Dates: start: 20170407
  3. ILEVRO [Suspect]
     Active Substance: NEPAFENAC
     Indication: PREOPERATIVE CARE
     Dosage: IN OPERATED EYE AT BEDTIME
     Route: 047
     Dates: start: 20170407

REACTIONS (5)
  - Eye irritation [Recovered/Resolved]
  - Product physical consistency issue [Unknown]
  - Application site pain [Recovered/Resolved]
  - Off label use [Unknown]
  - Foreign body sensation in eyes [Recovered/Resolved]

NARRATIVE: CASE EVENT DATE: 201703
